FAERS Safety Report 12500822 (Version 1)
Quarter: 2016Q2

REPORT INFORMATION
  Report Type: Spontaneous
  Country: US (occurrence: US)
  Receive Date: 20160627
  Receipt Date: 20160627
  Transmission Date: 20160815
  Serious: Yes (Life-Threatening, Hospitalization, Disabling, Other)
  Sender: FDA-Public Use
  Company Number: US-009507513-1606USA012298

PATIENT
  Age: 68 Year
  Sex: Male
  Weight: 71.65 kg

DRUGS (5)
  1. INTEGRILIN [Suspect]
     Active Substance: EPTIFIBATIDE
     Indication: MYOCARDIAL INFARCTION
     Dosage: 6.2 ML, BOLUS X2
     Route: 042
     Dates: start: 20150822, end: 20150822
  2. ATROPINE. [Concomitant]
     Active Substance: ATROPINE
     Dosage: 0.5 AMP, UNK
     Route: 042
     Dates: start: 20150822
  3. HEPARIN [Concomitant]
     Active Substance: HEPARIN SODIUM
     Dosage: 5000 UNITS, UNK
     Dates: start: 20150822
  4. AMIODARONE [Concomitant]
     Active Substance: AMIODARONE
     Dosage: 150 MG BOLUS FOLLOWED BY 33.3 MG/HR
     Route: 042
     Dates: start: 20150822
  5. ZOFRAN [Concomitant]
     Active Substance: ONDANSETRON HYDROCHLORIDE
     Dosage: 8 MG, UNK
     Route: 042
     Dates: start: 20150822

REACTIONS (22)
  - Myocardial infarction [Recovering/Resolving]
  - Coagulopathy [Unknown]
  - Eye contusion [Unknown]
  - Mental status changes [Unknown]
  - Rash [Unknown]
  - Pancytopenia [Unknown]
  - Lung consolidation [Unknown]
  - Acute myocardial infarction [Recovering/Resolving]
  - Internal haemorrhage [Recovering/Resolving]
  - Pleural effusion [Unknown]
  - Anaemia [Unknown]
  - Anaphylactic reaction [Recovering/Resolving]
  - Synovial cyst [Unknown]
  - Hyperglycaemia [Unknown]
  - Arteriosclerosis coronary artery [Unknown]
  - Vascular stent occlusion [Unknown]
  - Ascites [Unknown]
  - Pneumomediastinum [Unknown]
  - Upper airway obstruction [Unknown]
  - Hypokalaemia [Unknown]
  - Fall [Unknown]
  - Pneumothorax [Unknown]

NARRATIVE: CASE EVENT DATE: 201508
